FAERS Safety Report 5867441-7 (Version None)
Quarter: 2008Q3

REPORT INFORMATION
  Report Type: 
  Country: None (occurrence: None)
  Receive Date: 20080829
  Receipt Date: 20080829
  Transmission Date: 20090109
  Serious: No
  Sender: FDA-Public Use
  Company Number: None

PATIENT
  Age: 77 Year
  Sex: Male
  Weight: 77.6 kg

DRUGS (1)
  1. LENALIDOMIDE [Suspect]
     Indication: MULTIPLE MYELOMA
     Dosage: 5 MG HS PO
     Route: 048
     Dates: start: 20080422, end: 20080815

REACTIONS (6)
  - ABDOMINAL PAIN [None]
  - ANXIETY [None]
  - BONE PAIN [None]
  - DIABETES MELLITUS [None]
  - MUSCLE SPASMS [None]
  - OEDEMA [None]
